FAERS Safety Report 6517587-5 (Version None)
Quarter: 2009Q4

REPORT INFORMATION
  Report Type: 
  Country: None (occurrence: None)
  Receive Date: 20091224
  Receipt Date: 20091220
  Transmission Date: 20100525
  Serious: Yes (Death)
  Sender: FDA-Public Use
  Company Number: IR-ROCHE-675945

PATIENT
  Sex: Female

DRUGS (1)
  1. VALCYTE [Suspect]
     Route: 048
     Dates: start: 20090701, end: 20090801

REACTIONS (1)
  - SEPSIS [None]
